FAERS Safety Report 23346797 (Version 1)
Quarter: 2023Q4

REPORT INFORMATION
  Report Type: Spontaneous
  Country: US (occurrence: US)
  Receive Date: 20231228
  Receipt Date: 20231228
  Transmission Date: 20240109
  Serious: No
  Sender: FDA-Public Use
  Company Number: US-SANOFI-01879708

PATIENT
  Age: 45 Year
  Sex: Male

DRUGS (5)
  1. ELOCTATE [Suspect]
     Active Substance: EFMOROCTOCOG ALFA
     Indication: Factor VIII deficiency
     Dosage: 3675, QOD, OTHER
     Route: 042
  2. ELOCTATE [Suspect]
     Active Substance: EFMOROCTOCOG ALFA
     Indication: Factor VIII deficiency
     Dosage: 3675, QOD, OTHER
     Route: 042
  3. CHLORTHALIDONE [Concomitant]
     Active Substance: CHLORTHALIDONE
  4. ENALAPRIL MALEATE [Concomitant]
     Active Substance: ENALAPRIL MALEATE
  5. CELEBREX [Concomitant]
     Active Substance: CELECOXIB
     Dosage: UNK

REACTIONS (1)
  - Haemorrhage [Unknown]
